FAERS Safety Report 9559470 (Version 1)
Quarter: 2013Q3

REPORT INFORMATION
  Report Type: Spontaneous
  Country: US (occurrence: None)
  Receive Date: 20130906
  Receipt Date: 20130906
  Transmission Date: 20140515
  Serious: No
  Sender: FDA-Public Use
  Company Number: 163-POMAL-13073258

PATIENT
  Age: 62 Year
  Sex: Female

DRUGS (2)
  1. POMALYST [Suspect]
     Indication: PLASMA CELL MYELOMA
     Dates: start: 201303
  2. PATANASE (OLOPATADINE HYDROCHLORIDE) [Concomitant]

REACTIONS (3)
  - Seborrhoeic dermatitis [None]
  - Seasonal allergy [None]
  - Ear infection [None]
